FAERS Safety Report 10460092 (Version 3)
Quarter: 2014Q4

REPORT INFORMATION
  Report Type: Report from Study
  Country: US (occurrence: US)
  Receive Date: 20140917
  Receipt Date: 20141003
  Transmission Date: 20150528
  Serious: Yes (Congenital Anomaly, Other)
  Sender: FDA-Public Use
  Company Number: US-GILEAD-2014-0115371

PATIENT
  Sex: Male
  Weight: 3 kg

DRUGS (3)
  1. EMTRICITABINE/TENOFOVIR DISOPROXIL FUMARATE [Suspect]
     Active Substance: EMTRICITABINE\TENOFOVIR DISOPROXIL
     Indication: HIV INFECTION
     Dosage: 1 DF, QD
     Route: 064
     Dates: start: 20111013, end: 20120627
  2. REYATAZ [Suspect]
     Active Substance: ATAZANAVIR SULFATE
     Indication: HIV INFECTION
     Dosage: 200 MG, QD
     Route: 064
     Dates: start: 20111013, end: 20120627
  3. NORVIR [Suspect]
     Active Substance: RITONAVIR
     Indication: HIV INFECTION
     Dosage: 200 MG, QD
     Route: 064
     Dates: start: 20111013, end: 20120627

REACTIONS (4)
  - Tricuspid valve incompetence [Unknown]
  - Oxygen supplementation [Unknown]
  - Pulmonary hypertension [Unknown]
  - Trisomy 21 [Unknown]
